FAERS Safety Report 5521861-9 (Version None)
Quarter: 2007Q4

REPORT INFORMATION
  Report Type: 
  Country: None (occurrence: None)
  Receive Date: 20071120
  Receipt Date: 20071109
  Transmission Date: 20080405
  Serious: Yes (Other)
  Sender: FDA-Public Use
  Company Number: PHBS2007US18885

PATIENT
  Age: 10 Year
  Sex: Male

DRUGS (6)
  1. AMLODIPINE [Concomitant]
  2. PREDNISONE TAB [Concomitant]
  3. AMPHOTERICIN B [Concomitant]
  4. CLONIDINE [Concomitant]
  5. PENTAMIDINE ISETHIONATE [Concomitant]
  6. CYCLOSPORINE [Suspect]
     Indication: BONE MARROW TRANSPLANT
     Route: 065

REACTIONS (5)
  - MUCOSAL INFLAMMATION [None]
  - PAIN [None]
  - POLYP [None]
  - POLYPECTOMY [None]
  - TONGUE ULCERATION [None]
